FAERS Safety Report 4459927-7 (Version None)
Quarter: 2004Q3

REPORT INFORMATION
  Report Type: 
  Country: None (occurrence: None)
  Receive Date: 20040928
  Receipt Date: 20030908
  Transmission Date: 20050211
  Serious: No
  Sender: FDA-Public Use
  Company Number: US-GLAXOSMITHKLINE-A0425042A

PATIENT

DRUGS (4)
  1. SEREVENT [Suspect]
     Route: 055
  2. ALBUTEROL [Concomitant]
  3. ATROVENT [Concomitant]
  4. FLOVENT [Concomitant]

REACTIONS (1)
  - MUCOUS MEMBRANE DISORDER [None]
